FAERS Safety Report 7666149-5 (Version None)
Quarter: 2011Q3

REPORT INFORMATION
  Report Type: 
  Country: None (occurrence: None)
  Receive Date: 20110806
  Receipt Date: 20110509
  Transmission Date: 20111222
  Serious: No
  Sender: FDA-Public Use
  Company Number: US-ABBOTT-11P-163-0724358-00

PATIENT
  Sex: Male

DRUGS (3)
  1. UNKNOWN MEDICATION [Concomitant]
     Indication: ARTHRITIS
  2. UNKNOWN MEDICATION [Concomitant]
     Indication: SUPPLEMENTATION THERAPY
  3. NIASPAN [Suspect]
     Indication: PRODUCT USED FOR UNKNOWN INDICATION
     Dates: start: 20110201

REACTIONS (3)
  - FLUSHING [None]
  - TOOTH EXTRACTION [None]
  - PRURITUS [None]
